FAERS Safety Report 23758593 (Version 2)
Quarter: 2024Q2

REPORT INFORMATION
  Report Type: Other
  Country: CA (occurrence: CA)
  Receive Date: 20240418
  Receipt Date: 20240521
  Transmission Date: 20240715
  Serious: Yes (Other)
  Sender: FDA-Public Use
  Company Number: CA-002147023-PHHY2016CA086948

PATIENT
  Age: 46 Year
  Sex: Female

DRUGS (28)
  1. XOLAIR [Suspect]
     Active Substance: OMALIZUMAB
     Indication: Chronic spontaneous urticaria
     Route: 058
     Dates: start: 20160620, end: 20170515
  2. XOLAIR [Suspect]
     Active Substance: OMALIZUMAB
     Route: 058
     Dates: start: 20160718
  3. XOLAIR [Suspect]
     Active Substance: OMALIZUMAB
     Route: 058
     Dates: start: 20160815, end: 20160912
  4. XOLAIR [Suspect]
     Active Substance: OMALIZUMAB
     Dosage: UNK
     Route: 058
     Dates: start: 20161004
  5. XOLAIR [Suspect]
     Active Substance: OMALIZUMAB
     Dosage: UNK
     Route: 058
     Dates: start: 20161031
  6. XOLAIR [Suspect]
     Active Substance: OMALIZUMAB
     Route: 058
     Dates: start: 20161129
  7. XOLAIR [Suspect]
     Active Substance: OMALIZUMAB
     Route: 058
     Dates: start: 20170320
  8. XOLAIR [Suspect]
     Active Substance: OMALIZUMAB
     Route: 058
     Dates: start: 20231213
  9. XOLAIR [Suspect]
     Active Substance: OMALIZUMAB
     Route: 065
     Dates: start: 20160620, end: 20170515
  10. XOLAIR [Suspect]
     Active Substance: OMALIZUMAB
     Route: 065
     Dates: start: 20231213
  11. XOLAIR [Suspect]
     Active Substance: OMALIZUMAB
     Route: 065
     Dates: start: 20240411
  12. XOLAIR [Suspect]
     Active Substance: OMALIZUMAB
     Route: 065
  13. DUPIXENT [Suspect]
     Active Substance: DUPILUMAB
     Indication: Product used for unknown indication
     Dosage: 300 MG Q 2 WEEK
     Route: 065
  14. EBASTINE [Concomitant]
     Active Substance: EBASTINE
     Indication: Urticaria
     Dosage: 1 DF, QD
     Route: 065
  15. EBASTINE [Concomitant]
     Active Substance: EBASTINE
     Dosage: FOR ONE MONTH
     Route: 065
     Dates: start: 20160812
  16. EBASTINE [Concomitant]
     Active Substance: EBASTINE
     Dosage: 5 MG, QD
     Route: 065
  17. ATARAX [Concomitant]
     Active Substance: HYDROXYZINE HYDROCHLORIDE
     Indication: Product used for unknown indication
     Dosage: 25 MG, TID
     Route: 065
  18. BENADRYL [Concomitant]
     Active Substance: DIPHENHYDRAMINE HYDROCHLORIDE
     Indication: Pruritus
     Dosage: UNK UNK, PRN
  19. BENADRYL [Concomitant]
     Active Substance: DIPHENHYDRAMINE HYDROCHLORIDE
     Indication: Urticaria
     Dosage: UNK, PRN
  20. BENADRYL [Concomitant]
     Active Substance: DIPHENHYDRAMINE HYDROCHLORIDE
     Dosage: UNK
     Dates: start: 20160903
  21. BENADRYL [Concomitant]
     Active Substance: DIPHENHYDRAMINE HYDROCHLORIDE
     Dosage: UNK, BID
  22. CETIRIZINE HYDROCHLORIDE [Concomitant]
     Active Substance: CETIRIZINE HYDROCHLORIDE
     Indication: Product used for unknown indication
     Dosage: 20 OT, QD
     Route: 065
  23. ZANTAC [Concomitant]
     Active Substance: RANITIDINE HYDROCHLORIDE
     Indication: Product used for unknown indication
     Dosage: 150 MG, BID
     Route: 065
  24. MONTELUKAST [Concomitant]
     Active Substance: MONTELUKAST SODIUM
     Indication: Product used for unknown indication
     Dosage: 10 MG, QD
     Dates: start: 20231106
  25. SEROQUEL [Concomitant]
     Active Substance: QUETIAPINE FUMARATE
     Indication: Product used for unknown indication
     Dosage: UNK
     Route: 065
  26. RUPATADINE FUMARATE [Concomitant]
     Active Substance: RUPATADINE FUMARATE
     Indication: Product used for unknown indication
     Dosage: 2 DOSAGE FORM, QD
     Dates: start: 20231018
  27. EFFEXOR [Concomitant]
     Active Substance: VENLAFAXINE HYDROCHLORIDE
     Indication: Product used for unknown indication
     Dosage: UNK
     Route: 065
  28. RANITIDINE [Concomitant]
     Active Substance: RANITIDINE
     Indication: Product used for unknown indication
     Dosage: 150 MG, BID
     Dates: start: 20231106

REACTIONS (36)
  - Chronic spontaneous urticaria [Not Recovered/Not Resolved]
  - Peau d^orange [Unknown]
  - Traumatic haemorrhage [Unknown]
  - Tachycardia [Unknown]
  - Anxiety [Unknown]
  - Vein discolouration [Unknown]
  - Dermatitis allergic [Unknown]
  - Pain [Unknown]
  - Burning sensation [Unknown]
  - Paraesthesia [Unknown]
  - Breast swelling [Unknown]
  - Breast pain [Unknown]
  - Rash erythematous [Unknown]
  - Skin warm [Unknown]
  - Contusion [Unknown]
  - Skin mass [Unknown]
  - Scratch [Unknown]
  - Skin plaque [Unknown]
  - Dermatitis [Not Recovered/Not Resolved]
  - Dry skin [Unknown]
  - Acne [Unknown]
  - Hyperhidrosis [Unknown]
  - Eczema [Unknown]
  - Discomfort [Unknown]
  - Skin swelling [Unknown]
  - Psoriasis [Unknown]
  - Oedema [Unknown]
  - Scar [Unknown]
  - Fatigue [Recovering/Resolving]
  - Injection site swelling [Unknown]
  - Oropharyngeal pain [Unknown]
  - Cough [Unknown]
  - Nasopharyngitis [Unknown]
  - Bronchitis [Unknown]
  - Off label use [Unknown]
  - Therapeutic product effect decreased [Unknown]

NARRATIVE: CASE EVENT DATE: 20160620
